FAERS Safety Report 9117442 (Version 2)
Quarter: 2013Q1

REPORT INFORMATION
  Report Type: Spontaneous
  Country: US (occurrence: US)
  Receive Date: 20130225
  Receipt Date: 20130318
  Transmission Date: 20140127
  Serious: Yes (Death, Hospitalization)
  Sender: FDA-Public Use
  Company Number: US-BIOGENIDEC-2013BI016197

PATIENT
  Age: 62 Year
  Sex: Female

DRUGS (2)
  1. TYSABRI [Suspect]
     Indication: MULTIPLE SCLEROSIS
     Route: 042
     Dates: start: 20100212, end: 20130111
  2. ANTIBIOTICS [Concomitant]

REACTIONS (4)
  - Escherichia urinary tract infection [Fatal]
  - Hip fracture [Unknown]
  - Hypotension [Unknown]
  - Renal failure [Unknown]
